FAERS Safety Report 5719259-3 (Version None)
Quarter: 2008Q2

REPORT INFORMATION
  Report Type: 
  Country: None (occurrence: None)
  Receive Date: 20080425
  Receipt Date: 20080425
  Transmission Date: 20081010
  Serious: Yes (Other)
  Sender: FDA-Public Use
  Company Number: None

PATIENT
  Age: 32 Year
  Sex: Female
  Weight: 92.9874 kg

DRUGS (1)
  1. SINGULAIR [Suspect]
     Dosage: 10 MG 1 QHS PO 047
     Route: 048
     Dates: start: 20070101, end: 20080401

REACTIONS (2)
  - CONDITION AGGRAVATED [None]
  - SUICIDAL IDEATION [None]
